FAERS Safety Report 12349549 (Version 5)
Quarter: 2018Q3

REPORT INFORMATION
  Report Type: Spontaneous
  Country: GB (occurrence: GB)
  Receive Date: 20160510
  Receipt Date: 20180918
  Transmission Date: 20181010
  Serious: Yes (Disabling, Other)
  Sender: FDA-Public Use
  Company Number: GB-009507513-1603GBR003081

PATIENT
  Age: 82 Year
  Sex: Female
  Weight: 69.98 kg

DRUGS (1)
  1. KEYTRUDA [Suspect]
     Active Substance: PEMBROLIZUMAB
     Indication: METASTATIC MALIGNANT MELANOMA
     Dosage: EVERY 4 WEEKS
     Route: 042
     Dates: start: 201511, end: 201604

REACTIONS (7)
  - Cataract nuclear [Recovered/Resolved]
  - Retinopathy [Not Recovered/Not Resolved]
  - Iritis [Unknown]
  - Choroidal neovascularisation [Not Recovered/Not Resolved]
  - Uveitis [Not Recovered/Not Resolved]
  - Retinal pigment epitheliopathy [Not Recovered/Not Resolved]
  - Vision blurred [Unknown]

NARRATIVE: CASE EVENT DATE: 201512
